FAERS Safety Report 17037041 (Version 1)
Quarter: 2019Q4

REPORT INFORMATION
  Report Type: Spontaneous
  Country: US (occurrence: US)
  Receive Date: 20191115
  Receipt Date: 20191115
  Transmission Date: 20200122
  Serious: Yes (Other)
  Sender: FDA-Public Use
  Company Number: US-PFIZER INC-2019488233

PATIENT
  Age: 83 Year
  Sex: Male

DRUGS (2)
  1. VFEND [Suspect]
     Active Substance: VORICONAZOLE
     Dosage: 1.5 DF, 2X/DAY [TAKE 1.5 TABLETS(300MG  TOTAL), BEFORE MEALS]
     Route: 048
  2. VFEND [Suspect]
     Active Substance: VORICONAZOLE
     Indication: BRONCHOPULMONARY ASPERGILLOSIS
     Dosage: 200 MG, 2X/DAY
     Route: 048

REACTIONS (3)
  - Drug hypersensitivity [Unknown]
  - Drug-induced liver injury [Unknown]
  - Transaminases increased [Unknown]
